FAERS Safety Report 21023169 (Version 1)
Quarter: 2022Q2

REPORT INFORMATION
  Report Type: Spontaneous
  Country: CH (occurrence: CH)
  Receive Date: 20220629
  Receipt Date: 20220629
  Transmission Date: 20220721
  Serious: Yes (Hospitalization, Other)
  Sender: FDA-Public Use
  Company Number: CH-SLATE RUN PHARMACEUTICALS-22CH001167

PATIENT

DRUGS (10)
  1. CINACALCET HYDROCHLORIDE [Suspect]
     Active Substance: CINACALCET HYDROCHLORIDE
     Indication: Hypercalcaemia
     Dosage: 120 MILLIGRAM, Q 8 HR
  2. CINACALCET HYDROCHLORIDE [Suspect]
     Active Substance: CINACALCET HYDROCHLORIDE
     Dosage: 30 MILLIGRAM, Q 12 HR, DURING FIRST 4 DAYS
  3. CALCITONIN [Suspect]
     Active Substance: CALCITONIN
     Indication: Hypercalcaemia
     Dosage: 2100 INTERNATIONAL UNIT CUMULATED OVER 72 H
     Route: 058
  4. DENOSUMAB [Suspect]
     Active Substance: DENOSUMAB
     Indication: Product used for unknown indication
     Dosage: TWO ADDITIONAL DOSES
  5. DENOSUMAB [Suspect]
     Active Substance: DENOSUMAB
     Dosage: 60 MILLIGRAM, SINGLE
  6. SODIUM CHLORIDE [Concomitant]
     Active Substance: SODIUM CHLORIDE
     Indication: Blood volume expansion
     Dosage: 12500 ML, QD
     Route: 042
  7. SODIUM CHLORIDE [Concomitant]
     Active Substance: SODIUM CHLORIDE
     Dosage: 7000 ML, QD, ON DAY 2 TO 4
     Route: 042
  8. SODIUM CHLORIDE [Concomitant]
     Active Substance: SODIUM CHLORIDE
     Dosage: 3000 ML, SINGLE, ON DAY 1
     Route: 042
  9. PREDNISONE [Concomitant]
     Active Substance: PREDNISONE
     Indication: Product used for unknown indication
     Dosage: 40 MILLIGRAM, QD
     Route: 048
  10. ZOLEDRONIC ACID [Concomitant]
     Active Substance: ZOLEDRONIC ACID
     Indication: Product used for unknown indication
     Dosage: 4 MILLIGRAM, SINGLE
     Route: 042

REACTIONS (9)
  - Atrial flutter [Unknown]
  - Hypovolaemia [Recovered/Resolved]
  - Treatment failure [Recovered/Resolved]
  - Hypercalcaemia [Recovered/Resolved]
  - Tachycardia [Unknown]
  - Urine output increased [Unknown]
  - Fluid balance negative [Recovered/Resolved]
  - Metabolic acidosis [Unknown]
  - Hypotension [Unknown]

NARRATIVE: CASE EVENT DATE: 20190101
